FAERS Safety Report 9904731 (Version 3)
Quarter: 2014Q1

REPORT INFORMATION
  Report Type: Spontaneous
  Country: JP (occurrence: JP)
  Receive Date: 20140218
  Receipt Date: 20140326
  Transmission Date: 20141002
  Serious: Yes (Hospitalization)
  Sender: FDA-Public Use
  Company Number: JP-SA-2014SA001856

PATIENT
  Age: 46 Year
  Sex: Male
  Weight: 57 kg

DRUGS (6)
  1. LANTUS SOLOSTAR [Suspect]
     Indication: DIABETES MELLITUS
     Dosage: DOSE: 11 - 12 UNITS
     Route: 058
     Dates: start: 20131204, end: 20131215
  2. RISPERIDONE [Suspect]
     Indication: PRODUCT USED FOR UNKNOWN INDICATION
     Dosage: DOSE 0.5 - 1 MG TID
     Route: 048
     Dates: end: 20131213
  3. SOLOSTAR [Concomitant]
  4. HUMALOG [Concomitant]
     Indication: DIABETES MELLITUS
     Dosage: DOSE: 30 - 36 UNITS TID
     Route: 058
     Dates: start: 20131204, end: 20131216
  5. NOVOLIN R [Concomitant]
     Indication: DIABETES MELLITUS
     Dosage: DOSE:5 UNIT(S)
     Route: 042
     Dates: start: 20131210, end: 20131213
  6. GOODMIN [Concomitant]
     Route: 048
     Dates: end: 20131213

REACTIONS (1)
  - Hepatic function abnormal [Recovered/Resolved]
